FAERS Safety Report 10237693 (Version 1)
Quarter: 2014Q2

REPORT INFORMATION
  Report Type: Spontaneous
  Country: GB (occurrence: GB)
  Receive Date: 20140616
  Receipt Date: 20140616
  Transmission Date: 20141212
  Serious: Yes (Hospitalization, Other)
  Sender: FDA-Public Use
  Company Number: GB-ROCHE-1417820

PATIENT
  Sex: Female

DRUGS (2)
  1. XOLAIR [Suspect]
     Indication: ANGIOEDEMA
     Route: 065
  2. XOLAIR [Suspect]
     Indication: URTICARIA

REACTIONS (6)
  - Swollen tongue [Unknown]
  - Tongue discolouration [Unknown]
  - Abdominal pain upper [Unknown]
  - Angioedema [Unknown]
  - Urticaria [Unknown]
  - Drug ineffective [Unknown]
